FAERS Safety Report 20989826 (Version 2)
Quarter: 2022Q2

REPORT INFORMATION
  Report Type: Spontaneous
  Country: US (occurrence: US)
  Receive Date: 20220621
  Receipt Date: 20220623
  Transmission Date: 20220721
  Serious: Yes (Other)
  Sender: FDA-Public Use
  Company Number: US-PURDUE PHARMA-USA-2021-0289613

PATIENT
  Sex: Female

DRUGS (1)
  1. OXYCONTIN [Suspect]
     Active Substance: OXYCODONE HYDROCHLORIDE
     Indication: Tooth disorder
     Dosage: UNK
     Route: 048

REACTIONS (5)
  - Drug dependence [Recovered/Resolved]
  - Product prescribing error [Unknown]
  - Quality of life decreased [Unknown]
  - General physical health deterioration [Unknown]
  - Maternal exposure during pregnancy [Recovered/Resolved]
